FAERS Safety Report 9229503 (Version 3)
Quarter: 2013Q2

REPORT INFORMATION
  Report Type: Spontaneous
  Country: JP (occurrence: JP)
  Receive Date: 20130412
  Receipt Date: 20130522
  Transmission Date: 20140414
  Serious: Yes (Hospitalization, Other)
  Sender: FDA-Public Use
  Company Number: JP-B.I. PHARMACEUTICALS,INC./RIDGEFIELD-2013-BI-09392NB

PATIENT
  Age: 73 Year
  Sex: Male
  Weight: 47 kg

DRUGS (5)
  1. PRAZAXA [Suspect]
     Indication: ATRIAL FIBRILLATION
     Dosage: 220 MG
     Route: 048
     Dates: start: 20130328, end: 20130401
  2. AMARYL [Concomitant]
     Indication: DIABETES MELLITUS
     Dosage: 1 MG
     Route: 048
     Dates: start: 20130305, end: 20130401
  3. NORVASC [Concomitant]
     Indication: HYPERTENSION
     Dosage: 5 MG
     Route: 048
     Dates: start: 20130305, end: 20130401
  4. ARICEPT D [Concomitant]
     Indication: DEMENTIA
     Dosage: 5 MG
     Route: 048
     Dates: start: 20130305, end: 20130401
  5. LANTUS [Concomitant]
     Indication: DIABETES MELLITUS
     Dates: start: 20130328

REACTIONS (4)
  - Tumour haemorrhage [Recovered/Resolved]
  - Adenocarcinoma of colon [Recovered/Resolved]
  - Skin odour abnormal [Unknown]
  - Product quality issue [Unknown]
